FAERS Safety Report 18021340 (Version 1)
Quarter: 2020Q3

REPORT INFORMATION
  Report Type: Spontaneous
  Country: DE (occurrence: DE)
  Receive Date: 20200714
  Receipt Date: 20200714
  Transmission Date: 20201103
  Serious: Yes (Other)
  Sender: FDA-Public Use
  Company Number: DE-TEVA-2020-DE-1799227

PATIENT
  Sex: Male

DRUGS (7)
  1. ROSUVASTATIN. [Suspect]
     Active Substance: ROSUVASTATIN
     Indication: PRODUCT USED FOR UNKNOWN INDICATION
     Dosage: THERAPY START DATE :ASKED BUT UNKNOWN :THERAPY END DATE :ASKED BUT UNKNOWN
     Route: 048
  2. ORLISTAT. [Suspect]
     Active Substance: ORLISTAT
     Indication: PRODUCT USED FOR UNKNOWN INDICATION
     Dosage: THERAPY START DATE :ASKED BUT UNKNOWN :THERAPY END DATE :ASKED BUT UNKNOWN
     Route: 065
  3. PANTOPRAZOLE [Suspect]
     Active Substance: PANTOPRAZOLE
     Indication: PRODUCT USED FOR UNKNOWN INDICATION
     Dosage: THERAPY START DATE :ASKED BUT UNKNOWN :THERAPY END DATE :ASKED BUT UNKNOWN
     Route: 065
  4. BRILIQUE [Concomitant]
     Active Substance: TICAGRELOR
     Indication: PRODUCT USED FOR UNKNOWN INDICATION
     Dosage: THERAPY START DATE :ASKED BUT UNKNOWN :THERAPY END DATE :ASKED BUT UNKNOWN
     Route: 065
  5. ACETYLSALICYLIC ACID [Suspect]
     Active Substance: ASPIRIN
     Indication: PRODUCT USED FOR UNKNOWN INDICATION
     Dosage: THERAPY START DATE :ASKED BUT UNKNOWN :THERAPY END DATE :ASKED BUT UNKNOWN
     Route: 065
  6. RAMIPRIL. [Suspect]
     Active Substance: RAMIPRIL
     Indication: PRODUCT USED FOR UNKNOWN INDICATION
     Dosage: THERAPY START DATE :ASKED BUT UNKNOWN :THERAPY END DATE :ASKED BUT UNKNOWN
     Route: 048
  7. THYRONAJOD [Concomitant]
     Active Substance: LEVOTHYROXINE SODIUM\POTASSIUM IODIDE
     Indication: PRODUCT USED FOR UNKNOWN INDICATION
     Dosage: THERAPY START DATE :ASKED BUT UNKNOWN :THERAPY END DATE :ASKED BUT UNKNOWN
     Route: 065

REACTIONS (2)
  - Blood uric acid increased [Unknown]
  - Coronary artery disease [Unknown]
